FAERS Safety Report 10516101 (Version 2)
Quarter: 2014Q4

REPORT INFORMATION
  Report Type: Report from Study
  Country: US (occurrence: US)
  Receive Date: 20141014
  Receipt Date: 20141014
  Transmission Date: 20150528
  Serious: Yes (Hospitalization, Other)
  Sender: FDA-Public Use
  Company Number: US-ALEXION PHARMACEUTICALS INC-A201002273

PATIENT
  Sex: Female

DRUGS (1)
  1. SOLIRIS [Suspect]
     Active Substance: ECULIZUMAB
     Indication: PAROXYSMAL NOCTURNAL HAEMOGLOBINURIA
     Dosage: UNK
     Route: 042

REACTIONS (12)
  - Blood lactate dehydrogenase increased [Unknown]
  - Diarrhoea [Unknown]
  - Wound [Unknown]
  - Transfusion [Unknown]
  - Polypectomy [Unknown]
  - Rectal haemorrhage [Unknown]
  - Abdominal pain [Unknown]
  - Fatigue [Unknown]
  - Malaise [Unknown]
  - Quality of life decreased [Unknown]
  - Urinary tract infection [Unknown]
  - Dyspnoea [Unknown]
